FAERS Safety Report 23682487 (Version 1)
Quarter: 2024Q1

REPORT INFORMATION
  Report Type: Spontaneous
  Country: HU (occurrence: HU)
  Receive Date: 20240328
  Receipt Date: 20240328
  Transmission Date: 20240410
  Serious: Yes (Hospitalization, Other)
  Sender: FDA-Public Use
  Company Number: None

PATIENT
  Age: 25 Year
  Sex: Female
  Weight: 99 kg

DRUGS (1)
  1. CLINDAMYCIN HYDROCHLORIDE [Suspect]
     Active Substance: CLINDAMYCIN HYDROCHLORIDE
     Indication: Pulpitis dental
     Dosage: TOTAL AMOUNT 600 MG
     Route: 048
     Dates: start: 20230925, end: 20230926

REACTIONS (5)
  - Dermatitis exfoliative generalised [Recovering/Resolving]
  - Rash pustular [Recovering/Resolving]
  - Paraesthesia oral [Unknown]
  - Sensation of foreign body [Unknown]
  - Erythema [Recovering/Resolving]

NARRATIVE: CASE EVENT DATE: 20230926
